FAERS Safety Report 6152398-4 (Version None)
Quarter: 2009Q2

REPORT INFORMATION
  Report Type: 
  Country: None (occurrence: None)
  Receive Date: 20090409
  Receipt Date: 20090402
  Transmission Date: 20091009
  Serious: Yes (Death)
  Sender: FDA-Public Use
  Company Number: 190213USA

PATIENT
  Sex: Male
  Weight: 137.4399 kg

DRUGS (14)
  1. METHOTREXATE [Suspect]
     Dosage: 3 TABS WEEKLY  (2.5 MG, 3 IN 1 WK)
  2. HYDROXYZINE HCL [Suspect]
     Dosage: 1 TAB QID (50 MG), ORAL
     Route: 048
  3. OPANA ER [Suspect]
     Dosage: 1 TAB Q12H (30MG, 1 IN 12 HR)
  4. FLUOXETINE HCL [Suspect]
     Dosage: 40 MG
  5. LUNESTA [Suspect]
     Indication: SLEEP DISORDER
     Dosage: 1 TAB QHS, ORAL
     Route: 048
  6. LISINOPRIL AND HYDROCHLOROTHIAZIDE [Suspect]
     Indication: HYPERTENSION
     Dosage: 1 TAB DAILY, ORAL
     Route: 048
  7. ATENOLOL [Suspect]
     Indication: HYPERTENSION
     Dosage: 25 MG DAILY (25 MG), ORAL
     Route: 048
  8. CARISOPRODOL [Suspect]
     Dosage: 350 MG, 1 TAB TID, ORAL
     Route: 048
  9. FORMOTEROL FUMARATE [Suspect]
     Dosage: 1 DOSE BID, RESPIRATORY (INHALATION)
     Route: 055
  10. NABUMETONE [Suspect]
     Dosage: 750 MG, 1 TAB BID, ORAL
     Route: 048
  11. QUETIAPINE FUMARATE [Suspect]
     Dosage: 200 MG, 4 TABS QHS, ORAL
     Route: 048
  12. ROPINIROLE HYDROCHLORIDE [Suspect]
     Dosage: 0.5 MG, 1 TAB QHS, ORAL
     Route: 048
  13. AMITRIPTLINE HYDROCHLORIDE TAB [Suspect]
     Dosage: 1 TAB QHS, ORAL
     Route: 048
  14. PEG-INTRON [Suspect]
     Dosage: 180 MG, WEEKLY

REACTIONS (2)
  - PAIN [None]
  - UNRESPONSIVE TO STIMULI [None]
